FAERS Safety Report 19173026 (Version 1)
Quarter: 2021Q2

REPORT INFORMATION
  Report Type: Spontaneous
  Country: US (occurrence: US)
  Receive Date: 20210423
  Receipt Date: 20210423
  Transmission Date: 20210717
  Serious: No
  Sender: FDA-Public Use
  Company Number: US-SUNOVION-2021SUN001392

PATIENT
  Age: 43 Year
  Sex: Female

DRUGS (9)
  1. COGENTIN [Concomitant]
     Active Substance: BENZTROPINE MESYLATE
     Dosage: 2 MG
     Route: 065
  2. KLONOPIN [Concomitant]
     Active Substance: CLONAZEPAM
     Dosage: 1 MG, QID
     Route: 065
  3. LATUDA [Suspect]
     Active Substance: LURASIDONE HYDROCHLORIDE
     Indication: BIPOLAR DISORDER
     Dosage: 120 MG
     Route: 048
  4. LATUDA [Suspect]
     Active Substance: LURASIDONE HYDROCHLORIDE
     Dosage: 80 MG
     Route: 048
  5. SEROQUEL [Suspect]
     Active Substance: QUETIAPINE FUMARATE
     Dosage: 900 MG, QD
     Route: 065
  6. AMBIEN [Concomitant]
     Active Substance: ZOLPIDEM TARTRATE
     Dosage: 10 MG, HS
     Route: 065
  7. LITHIUM. [Concomitant]
     Active Substance: LITHIUM
     Dosage: 900 MG, QD
     Route: 065
  8. COGENTIN [Concomitant]
     Active Substance: BENZTROPINE MESYLATE
     Dosage: 1 MG, QD
     Route: 065
  9. SYNTHROID [Concomitant]
     Active Substance: LEVOTHYROXINE SODIUM
     Dosage: 200 ?G, QD
     Route: 065

REACTIONS (5)
  - Restless legs syndrome [Unknown]
  - Flat affect [Unknown]
  - Musculoskeletal stiffness [Unknown]
  - Apathy [Unknown]
  - Fatigue [Unknown]
